FAERS Safety Report 18453111 (Version 3)
Quarter: 2020Q4

REPORT INFORMATION
  Report Type: Report from Study
  Country: None (occurrence: US)
  Receive Date: 20201102
  Receipt Date: 20201105
  Transmission Date: 20210114
  Serious: No
  Sender: FDA-Public Use
  Company Number: US-ABBVIE-20K-163-3630450-00

PATIENT
  Sex: Female

DRUGS (2)
  1. ORIAHNN [Suspect]
     Active Substance: ELAGOLIX SODIUM\ESTRADIOL\NORETHINDRONE
     Indication: PRODUCT USED FOR UNKNOWN INDICATION
     Route: 048
  2. ORIAHNN [Suspect]
     Active Substance: ELAGOLIX SODIUM\ESTRADIOL\NORETHINDRONE
     Indication: PRODUCT USED FOR UNKNOWN INDICATION
     Route: 048

REACTIONS (8)
  - Nausea [Unknown]
  - Dizziness [Unknown]
  - Initial insomnia [Unknown]
  - Vaginal haemorrhage [Unknown]
  - Hypersomnia [Unknown]
  - Vomiting [Unknown]
  - Alopecia [Unknown]
  - Headache [Unknown]

NARRATIVE: CASE EVENT DATE: 2020
